FAERS Safety Report 5638602-7 (Version None)
Quarter: 2008Q1

REPORT INFORMATION
  Report Type: 
  Country: None (occurrence: None)
  Receive Date: 20080226
  Receipt Date: 20070626
  Transmission Date: 20080703
  Serious: No
  Sender: FDA-Public Use
  Company Number: A0660255A

PATIENT
  Age: 30 Year
  Sex: Male

DRUGS (7)
  1. IMITREX [Suspect]
     Indication: MIGRAINE
     Dosage: 6MG AS REQUIRED
     Route: 058
     Dates: start: 20060101
  2. BENTYL [Concomitant]
     Dosage: 10MG THREE TIMES PER DAY
  3. LEXAPRO [Concomitant]
     Dosage: 10MG PER DAY
  4. PREVACID [Concomitant]
     Dosage: 30MG PER DAY
  5. KEPPRA [Concomitant]
     Dosage: 500MG TWICE PER DAY
  6. INDERAL [Concomitant]
     Dosage: 40MG TWICE PER DAY
  7. PHENERGAN HCL [Concomitant]
     Dosage: 25MG AS REQUIRED

REACTIONS (2)
  - INJECTION SITE DISCOLOURATION [None]
  - INJECTION SITE PAIN [None]
